FAERS Safety Report 11830998 (Version 2)
Quarter: 2016Q1

REPORT INFORMATION
  Report Type: Report from Study
  Country: DE (occurrence: DE)
  Receive Date: 20151214
  Receipt Date: 20160202
  Transmission Date: 20160525
  Serious: Yes (Other)
  Sender: FDA-Public Use
  Company Number: DE-ROCHE-1675091

PATIENT
  Age: 40 Year
  Sex: Male

DRUGS (1)
  1. XOLAIR [Suspect]
     Active Substance: OMALIZUMAB
     Indication: HYPER IGE SYNDROME
     Route: 058
     Dates: start: 2011

REACTIONS (3)
  - Hypersensitivity vasculitis [Recovered/Resolved]
  - Product use issue [Unknown]
  - Serum sickness [Recovered/Resolved]
